FAERS Safety Report 7898764-8 (Version None)
Quarter: 2011Q4

REPORT INFORMATION
  Report Type: 
  Country: None (occurrence: None)
  Receive Date: 20111107
  Receipt Date: 20110810
  Transmission Date: 20120403
  Serious: No
  Sender: FDA-Public Use
  Company Number: US-ABBOTT-11P-163-0845686-00

PATIENT
  Sex: Female
  Weight: 93.07 kg

DRUGS (4)
  1. KLOR-CON [Concomitant]
     Indication: MINERAL SUPPLEMENTATION
  2. TRICOR [Suspect]
     Indication: BLOOD TRIGLYCERIDES INCREASED
     Dates: start: 20080101, end: 20110808
  3. SIMVASTATIN [Concomitant]
     Indication: BLOOD CHOLESTEROL INCREASED
  4. DIOVAN [Concomitant]
     Indication: HYPERTENSION

REACTIONS (4)
  - SKIN BURNING SENSATION [None]
  - RASH MACULAR [None]
  - PRODUCT TAMPERING [None]
  - ERYTHEMA [None]
